FAERS Safety Report 4619399-6 (Version None)
Quarter: 2005Q2

REPORT INFORMATION
  Report Type: 
  Country: None (occurrence: None)
  Receive Date: 20050321
  Receipt Date: 20040405
  Transmission Date: 20051028
  Serious: Yes (Hospitalization, Disabling)
  Sender: FDA-Public Use
  Company Number: 2004-04-0309

PATIENT
  Age: 47 Year
  Sex: Male
  Weight: 117.9352 kg

DRUGS (3)
  1. PEG-INTRON (PEGINTERFERON ALFA-2B) INJECTABLE POWDER [Suspect]
     Indication: HEPATITIS C
     Dosage: 150 MCG QW, SUBCUTANEOUS
     Route: 058
     Dates: start: 20030701, end: 20040301
  2. REBETOL [Suspect]
     Indication: HEPATITIS C
     Dosage: 1400 MG QD, ORAL
     Route: 048
     Dates: start: 20030701, end: 20040301
  3. HYDROCHLOROTHIAZIDE [Concomitant]

REACTIONS (3)
  - CHEST PAIN [None]
  - DISTURBANCE IN ATTENTION [None]
  - FATIGUE [None]
